FAERS Safety Report 4511534-3 (Version None)
Quarter: 2004Q4

REPORT INFORMATION
  Report Type: 
  Country: None (occurrence: None)
  Receive Date: 20041129
  Receipt Date: 20040915
  Transmission Date: 20050328
  Serious: No
  Sender: FDA-Public Use
  Company Number: US-BRISTOL-MYERS SQUIBB COMPANY-12702742

PATIENT
  Age: 24 Year
  Sex: Female
  Weight: 57 kg

DRUGS (7)
  1. ABILIFY [Suspect]
     Indication: AFFECTIVE DISORDER
     Route: 048
     Dates: start: 20040901
  2. TOPAMAX [Concomitant]
  3. WELLBUTRIN [Concomitant]
  4. LAMICTAL [Concomitant]
  5. ADDERALL 10 [Concomitant]
  6. ZOLOFT [Concomitant]
  7. KLONOPIN [Concomitant]

REACTIONS (3)
  - METRORRHAGIA [None]
  - NAUSEA [None]
  - SEDATION [None]
